FAERS Safety Report 13725197 (Version 1)
Quarter: 2017Q3

REPORT INFORMATION
  Report Type: Other
  Country: None (occurrence: FR)
  Receive Date: 20170706
  Receipt Date: 20170706
  Transmission Date: 20171127
  Serious: Yes (Death)
  Sender: FDA-Public Use
  Company Number: FR-ALSI-201700186

PATIENT
  Age: 33 Year
  Sex: Female

DRUGS (2)
  1. NITROUS OXIDE. [Suspect]
     Active Substance: NITROUS OXIDE
     Indication: ANAESTHESIA PROCEDURE
     Route: 055
     Dates: start: 19841030, end: 19841030
  2. OXYGEN. [Suspect]
     Active Substance: OXYGEN
     Route: 055
     Dates: start: 19841030, end: 19841030

REACTIONS (3)
  - Hypotension [Fatal]
  - Medication error [Fatal]
  - Overdose [Fatal]

NARRATIVE: CASE EVENT DATE: 19841030
